FAERS Safety Report 6835173-4 (Version None)
Quarter: 2010Q3

REPORT INFORMATION
  Report Type: 
  Country: None (occurrence: None)
  Receive Date: 20100713
  Receipt Date: 20100602
  Transmission Date: 20110219
  Serious: No
  Sender: FDA-Public Use
  Company Number: 2009BI007398

PATIENT
  Age: 56 Year
  Sex: Female

DRUGS (4)
  1. TYSABRI [Suspect]
     Indication: MULTIPLE SCLEROSIS
     Route: 042
     Dates: start: 20070118
  2. PEPCID [Concomitant]
     Indication: PROPHYLAXIS
  3. BENADRYL [Concomitant]
     Indication: PROPHYLAXIS
  4. SALINE [Concomitant]
     Indication: PROPHYLAXIS
     Route: 042

REACTIONS (7)
  - ARTHRALGIA [None]
  - BLOOD PRESSURE DECREASED [None]
  - DRUG TOLERANCE DECREASED [None]
  - HEADACHE [None]
  - HYPERSENSITIVITY [None]
  - MUSCLE SPASMS [None]
  - PAIN IN EXTREMITY [None]
